FAERS Safety Report 11340421 (Version 4)
Quarter: 2015Q3

REPORT INFORMATION
  Report Type: Spontaneous
  Country: US (occurrence: None)
  Receive Date: 20150803
  Receipt Date: 20150818
  Transmission Date: 20151125
  Serious: Yes (Hospitalization, Other)
  Sender: FDA-Public Use
  Company Number: ADR-2015-01394

PATIENT
  Age: 56 Year
  Sex: Female

DRUGS (33)
  1. CREON [Concomitant]
     Active Substance: PANCRELIPASE AMYLASE\PANCRELIPASE LIPASE\PANCRELIPASE PROTEASE
  2. JANUVIA [Concomitant]
     Active Substance: SITAGLIPTIN PHOSPHATE
  3. LEVEMIR [Concomitant]
     Active Substance: INSULIN DETEMIR
  4. PROMETHAZINE [Concomitant]
     Active Substance: PROMETHAZINE\PROMETHAZINE HYDROCHLORIDE
  5. MELATONIN [Concomitant]
     Active Substance: MELATONIN
  6. DUONEB [Concomitant]
     Active Substance: ALBUTEROL SULFATE\IPRATROPIUM BROMIDE
  7. LASIX [Concomitant]
     Active Substance: FUROSEMIDE
  8. NOVOLOG [Concomitant]
     Active Substance: INSULIN ASPART
  9. ROSUVASTATIN [Concomitant]
     Active Substance: ROSUVASTATIN
  10. URECHOLINE [Concomitant]
     Active Substance: BETHANECHOL CHLORIDE
  11. PERCOCET [Concomitant]
     Active Substance: ACETAMINOPHEN\OXYCODONE HYDROCHLORIDE
  12. COMPOUNDED BACLOFEN INTRATHECAL (1500 MCG/ML) [Suspect]
     Active Substance: BACLOFEN
     Indication: PAIN
  13. ADVAIR DISKUS [Concomitant]
     Active Substance: FLUTICASONE PROPIONATE\SALMETEROL XINAFOATE
  14. OPIATES [Suspect]
     Active Substance: UNSPECIFIED INGREDIENT
     Dosage: SHORT-ACTING HYDROMORPHONE
     Route: 048
  15. LYRICA [Concomitant]
     Active Substance: PREGABALIN
  16. CLONIDINE INTRATHECAL 750 MCG/ML [Suspect]
     Active Substance: CLONIDINE
     Dosage: 759 MCG/ML; 262 MCG/DAY
  17. MIRALAX [Concomitant]
     Active Substance: POLYETHYLENE GLYCOL 3350
  18. VITAMIN D2 [Concomitant]
     Active Substance: ERGOCALCIFEROL
  19. OMEPRAZOLE. [Concomitant]
     Active Substance: OMEPRAZOLE
  20. ZYPREXA [Concomitant]
     Active Substance: OLANZAPINE
  21. BUPIVACAINE INTRATHECAL 20 MG/ML [Suspect]
     Active Substance: BUPIVACAINE
  22. POTASSIUM CHLORIDE. [Concomitant]
     Active Substance: POTASSIUM CHLORIDE
  23. ASPIRIN. [Concomitant]
     Active Substance: ASPIRIN
  24. CASTILE SOAP [Concomitant]
  25. DILAUDID [Suspect]
     Active Substance: HYDROMORPHONE HYDROCHLORIDE
  26. ALBUTEROL SULFATE. [Concomitant]
     Active Substance: ALBUTEROL SULFATE
  27. NEURONTIN [Suspect]
     Active Substance: GABAPENTIN
  28. LACTULOSE. [Concomitant]
     Active Substance: LACTULOSE
  29. BISACODYL. [Concomitant]
     Active Substance: BISACODYL
  30. FAMOTIDINE. [Concomitant]
     Active Substance: FAMOTIDINE
  31. SENNA PLUS [Concomitant]
     Active Substance: DOCUSATE SODIUM\SENNOSIDES\SENNOSIDES A AND B
  32. METOLAZONE. [Concomitant]
     Active Substance: METOLAZONE
  33. TRAZODONE [Concomitant]
     Active Substance: TRAZODONE HYDROCHLORIDE

REACTIONS (6)
  - Sedation [None]
  - Respiratory failure [None]
  - General physical health deterioration [None]
  - Respiratory depression [None]
  - Toxicity to various agents [None]
  - Lethargy [None]

NARRATIVE: CASE EVENT DATE: 20140627
